FAERS Safety Report 4619234-6 (Version None)
Quarter: 2005Q1

REPORT INFORMATION
  Report Type: 
  Country: None (occurrence: None)
  Receive Date: 20050318
  Receipt Date: 20050318
  Transmission Date: 20050727
  Serious: Yes (Hospitalization)
  Sender: FDA-Public Use
  Company Number: None

PATIENT
  Sex: Male
  Weight: 90.7194 kg

DRUGS (2)
  1. NOVOLIN 70/30 [Suspect]
     Indication: DIABETES MELLITUS
     Dosage: 50 U AM, 40 U PM [PRIOR TO ADMISSION]
  2. LANTUS [Suspect]
     Indication: DIABETES MELLITUS
     Dosage: 15 UNITS PM  [PRIOR TO ADMISSION]

REACTIONS (2)
  - COMA [None]
  - HYPERHIDROSIS [None]
